FAERS Safety Report 8580665-3 (Version None)
Quarter: 2012Q3

REPORT INFORMATION
  Report Type: 
  Country: None (occurrence: None)
  Receive Date: 20120809
  Receipt Date: 20120801
  Transmission Date: 20120928
  Serious: Yes (Hospitalization)
  Sender: FDA-Public Use
  Company Number: US-BIOGENIDEC-2012BI028681

PATIENT
  Age: 39 Year
  Sex: Male

DRUGS (3)
  1. NSAID [Concomitant]
     Route: 048
  2. AVONEX [Suspect]
     Indication: MULTIPLE SCLEROSIS
     Route: 030
     Dates: start: 19970312, end: 20030801
  3. AVONEX [Suspect]
     Route: 030
     Dates: start: 20030801, end: 20100315

REACTIONS (6)
  - MULTIPLE SCLEROSIS RELAPSE [None]
  - FOREIGN BODY [None]
  - CHEMICAL BURN OF GASTROINTESTINAL TRACT [None]
  - EAR INFECTION FUNGAL [None]
  - CENTRAL NERVOUS SYSTEM LESION [None]
  - BLOOD POTASSIUM DECREASED [None]
